FAERS Safety Report 6840061-3 (Version None)
Quarter: 2010Q3

REPORT INFORMATION
  Report Type: 
  Country: None (occurrence: None)
  Receive Date: 20100714
  Receipt Date: 20100706
  Transmission Date: 20110219
  Serious: Yes (Other)
  Sender: FDA-Public Use
  Company Number: US-ROCHE-714302

PATIENT
  Sex: Female

DRUGS (1)
  1. BONIVA [Suspect]
     Indication: OSTEOPOROSIS
     Dosage: THERAPY DURATION; 4-5 YEARS
     Route: 065

REACTIONS (3)
  - FALL [None]
  - PAIN IN EXTREMITY [None]
  - STRESS FRACTURE [None]
